FAERS Safety Report 13297873 (Version 1)
Quarter: 2017Q1

REPORT INFORMATION
  Report Type: Report from Study
  Country: US (occurrence: US)
  Receive Date: 20170306
  Receipt Date: 20170306
  Transmission Date: 20170428
  Serious: Yes (Other)
  Sender: FDA-Public Use
  Company Number: US-TAIHO ONCOLOGY INC-EU-2017-00381

PATIENT
  Sex: Male
  Weight: 108.96 kg

DRUGS (1)
  1. LONSURF [Suspect]
     Active Substance: TIPIRACIL HYDROCHLORIDE\TRIFLURIDINE
     Indication: COLORECTAL CANCER METASTATIC
     Dosage: DOSAGE UNKNOWN; COMPLETED 2 CYCLES
     Route: 048
     Dates: end: 201702

REACTIONS (2)
  - Acute hepatic failure [Unknown]
  - Liver injury [Unknown]
